FAERS Safety Report 9549496 (Version 1)
Quarter: 2013Q2

REPORT INFORMATION
  Report Type: Spontaneous
  Country: US (occurrence: None)
  Receive Date: 20130627
  Receipt Date: 20130627
  Transmission Date: 20140414
  Serious: No
  Sender: FDA-Public Use
  Company Number: 1000044016

PATIENT
  Age: 77 Year
  Sex: Female

DRUGS (5)
  1. LINZESS (LINACLOTIDE) (290 MICROGRAM, TABLETS) [Suspect]
     Indication: IRRITABLE BOWEL SYNDROME
     Route: 048
     Dates: start: 201303
  2. LINZESS (LINACLOTIDE) (290 MICROGRAM, TABLETS) [Suspect]
     Indication: CONSTIPATION
     Route: 048
     Dates: start: 201303
  3. ATENOLOL [Concomitant]
  4. LISINOPRIL [Concomitant]
  5. LORAZEPAM [Concomitant]

REACTIONS (2)
  - Confusional state [None]
  - Feeling abnormal [None]
